FAERS Safety Report 8397255-8 (Version None)
Quarter: 2012Q2

REPORT INFORMATION
  Report Type: 
  Country: None (occurrence: None)
  Receive Date: 20120531
  Receipt Date: 20120529
  Transmission Date: 20120825
  Serious: Yes (Hospitalization, Other)
  Sender: FDA-Public Use
  Company Number: FR-AMGEN-FRASP2012022814

PATIENT
  Age: 41 Year
  Sex: Female
  Weight: 53 kg

DRUGS (5)
  1. NEULASTA [Suspect]
     Indication: CHEMOTHERAPY
     Dosage: 6 MG, ONE TIME DOSE
     Route: 058
     Dates: start: 20120322, end: 20120322
  2. EMEND [Concomitant]
     Indication: NAUSEA
     Dosage: 80 MG, QD
     Route: 048
     Dates: start: 20120321, end: 20120322
  3. TAXOTERE [Suspect]
     Indication: BREAST CANCER
     Dosage: 156 MG, QD
     Route: 042
     Dates: start: 20120319
  4. SOLUPRED                           /00016201/ [Concomitant]
     Dosage: 50 MG, BID
     Route: 048
     Dates: start: 20120320, end: 20120320
  5. ANTINEOPLASTIC AGENTS [Concomitant]

REACTIONS (2)
  - FEBRILE BONE MARROW APLASIA [None]
  - ABDOMINAL PAIN [None]
